FAERS Safety Report 7806738-8 (Version None)
Quarter: 2011Q4

REPORT INFORMATION
  Report Type: 
  Country: None (occurrence: None)
  Receive Date: 20111011
  Receipt Date: 20110927
  Transmission Date: 20120403
  Serious: Yes (Other)
  Sender: FDA-Public Use
  Company Number: US-JNJFOC-20111001394

PATIENT
  Age: 71 Year
  Sex: Female

DRUGS (1)
  1. COOL MINT LISTERINE MOUTHWASH [Suspect]
     Indication: DENTAL DISORDER PROPHYLAXIS
     Dosage: ^LESS THAN HALF A CAPFUL^
     Route: 048
     Dates: start: 20110924, end: 20110924

REACTIONS (3)
  - APPLICATION SITE REACTION [None]
  - APPLICATION SITE BURN [None]
  - APPLICATION SITE VESICLES [None]
